FAERS Safety Report 19021192 (Version 2)
Quarter: 2022Q4

REPORT INFORMATION
  Report Type: Spontaneous
  Country: DE (occurrence: DE)
  Receive Date: 20210317
  Receipt Date: 20221030
  Transmission Date: 20230112
  Serious: Yes (Hospitalization)
  Sender: FDA-Public Use
  Company Number: DE-ADRED-06208-01

PATIENT
  Age: 31 Year
  Sex: Female
  Weight: 73 kg

DRUGS (5)
  1. PREDNISOLONE [Suspect]
     Active Substance: PREDNISOLONE
     Indication: Product used for unknown indication
     Dosage: 15 MILLIGRAM DAILY; 1-0-0-0
     Route: 065
  2. COLCHICUM [Suspect]
     Active Substance: COLCHICINE
     Indication: Product used for unknown indication
     Dosage: 1 MILLIGRAM DAILY; 0.5 MG, 1-0-1-0
  3. QUETIAPINE [Concomitant]
     Active Substance: QUETIAPINE
     Indication: Product used for unknown indication
     Dosage: 100 MILLIGRAM DAILY; 0-0-0-1
  4. FLUOXETINE HYDROCHLORIDE [Concomitant]
     Active Substance: FLUOXETINE HYDROCHLORIDE
     Indication: Product used for unknown indication
     Dosage: 2.5 DOSAGE FORMS DAILY; 20 MG, 2.5-0-0-0
  5. PANTOPRAZOLE SODIUM [Concomitant]
     Active Substance: PANTOPRAZOLE SODIUM
     Indication: Product used for unknown indication
     Dosage: 4 DOSAGE FORMS DAILY; 20 MG, 2-0-2-0

REACTIONS (9)
  - Abdominal distension [Unknown]
  - Abdominal pain [Unknown]
  - Abdominal pain upper [Unknown]
  - General physical health deterioration [Unknown]
  - Melaena [Unknown]
  - Musculoskeletal pain [Unknown]
  - Haematemesis [Unknown]
  - Melaena [Unknown]
  - Gastritis [Unknown]
